FAERS Safety Report 4514926-1 (Version None)
Quarter: 2004Q4

REPORT INFORMATION
  Report Type: 
  Country: None (occurrence: None)
  Receive Date: 20041201
  Receipt Date: 20041122
  Transmission Date: 20050328
  Serious: Yes (Life-Threatening)
  Sender: FDA-Public Use
  Company Number: DE-ABBOTT-04P-062-0281252-00

PATIENT
  Sex: Male

DRUGS (2)
  1. ENDAK TABLETS [Suspect]
     Indication: HYPERTENSION
     Route: 048
     Dates: start: 20040201
  2. ENDAK TABLETS [Suspect]
     Route: 048
     Dates: start: 20040101, end: 20040201

REACTIONS (4)
  - FALL [None]
  - NIGHTMARE [None]
  - SLEEP DISORDER [None]
  - SLEEP WALKING [None]
